FAERS Safety Report 9703726 (Version 3)
Quarter: 2014Q1

REPORT INFORMATION
  Report Type: Report from Study
  Country: DE (occurrence: DE)
  Receive Date: 20131122
  Receipt Date: 20140131
  Transmission Date: 20141002
  Serious: Yes (Other)
  Sender: FDA-Public Use
  Company Number: DE-ELI_LILLY_AND_COMPANY-DE201311004506

PATIENT
  Sex: Male
  Weight: 110 kg

DRUGS (3)
  1. OLANZAPINE LONG-ACTING IM [Suspect]
     Indication: SCHIZOAFFECTIVE DISORDER
     Dosage: 219 MG, EVERY 14 DAYS
     Route: 030
     Dates: start: 20110222
  2. VENLAFAXIN [Concomitant]
     Indication: PRODUCT USED FOR UNKNOWN INDICATION
     Dosage: 150 MG, QD
     Route: 065
  3. MIRTAZAPIN [Concomitant]
     Indication: PRODUCT USED FOR UNKNOWN INDICATION
     Dosage: 30 MG, UNK
     Dates: start: 20131111

REACTIONS (7)
  - Malaise [Recovered/Resolved]
  - Antisocial behaviour [Recovered/Resolved]
  - Sudden onset of sleep [Recovered/Resolved]
  - Dysarthria [Recovered/Resolved]
  - Dizziness [Recovered/Resolved]
  - Sedation [Recovered/Resolved]
  - Asthenia [Recovered/Resolved]
